FAERS Safety Report 16541319 (Version 1)
Quarter: 2019Q3

REPORT INFORMATION
  Report Type: Spontaneous
  Country: US (occurrence: US)
  Receive Date: 20190708
  Receipt Date: 20190708
  Transmission Date: 20191004
  Serious: Yes (Other)
  Sender: FDA-Public Use
  Company Number: US-CELGENEUS-USA-20190700308

PATIENT
  Age: 89 Year
  Sex: Female

DRUGS (3)
  1. REVLIMID [Suspect]
     Active Substance: LENALIDOMIDE
     Indication: OFF LABEL USE
  2. REVLIMID [Suspect]
     Active Substance: LENALIDOMIDE
     Indication: DIFFUSE LARGE B-CELL LYMPHOMA
     Dosage: 15 MILLIGRAM
     Route: 048
     Dates: start: 20180613
  3. ELIQUIS [Concomitant]
     Active Substance: APIXABAN
     Indication: ARTERIAL THROMBOSIS
     Route: 065
     Dates: start: 2019

REACTIONS (1)
  - Arterial thrombosis [Recovered/Resolved]

NARRATIVE: CASE EVENT DATE: 201906
